FAERS Safety Report 6937307-X (Version None)
Quarter: 2010Q3

REPORT INFORMATION
  Report Type: 
  Country: None (occurrence: None)
  Receive Date: 20100823
  Receipt Date: 20100520
  Transmission Date: 20110219
  Serious: No
  Sender: FDA-Public Use
  Company Number: US-MYLANLABS-2010S1008977

PATIENT
  Age: 75 Year
  Sex: Female
  Weight: 90.72 kg

DRUGS (3)
  1. NITROFURANTOIN [Suspect]
     Indication: URINARY TRACT INFECTION
     Route: 048
     Dates: start: 20100217, end: 20100220
  2. LISINOPRIL [Concomitant]
     Indication: HYPERTENSION
     Dates: start: 20070101
  3. ALEVE (CAPLET) [Concomitant]
     Indication: ARTHRITIS
     Dates: start: 20050101

REACTIONS (1)
  - FEELING ABNORMAL [None]
